FAERS Safety Report 22054763 (Version 2)
Quarter: 2023Q1

REPORT INFORMATION
  Report Type: Spontaneous
  Country: US (occurrence: US)
  Receive Date: 20230302
  Receipt Date: 20230316
  Transmission Date: 20230417
  Serious: No
  Sender: FDA-Public Use
  Company Number: US-PFIZER INC-PV202300038160

PATIENT
  Age: 80 Year
  Sex: Male

DRUGS (2)
  1. FUROSEMIDE [Suspect]
     Active Substance: FUROSEMIDE
     Indication: Swelling
     Dosage: UNK, 2X/DAY
  2. FUROSEMIDE [Suspect]
     Active Substance: FUROSEMIDE
     Indication: Dysuria

REACTIONS (2)
  - Drug ineffective [Unknown]
  - Weight decreased [Unknown]
